FAERS Safety Report 6335157-9 (Version None)
Quarter: 2009Q3

REPORT INFORMATION
  Report Type: 
  Country: None (occurrence: None)
  Receive Date: 20090831
  Receipt Date: 20090728
  Transmission Date: 20100115
  Serious: Yes (Death, Other)
  Sender: FDA-Public Use
  Company Number: JP-BAYER-200912340BYL

PATIENT
  Age: 59 Year
  Sex: Male
  Weight: 61 kg

DRUGS (8)
  1. NEXAVAR [Suspect]
     Indication: RENAL CELL CARCINOMA STAGE IV
     Dosage: UNIT DOSE: 200 MG
     Route: 048
     Dates: start: 20080620, end: 20080908
  2. NEXAVAR [Suspect]
     Dosage: UNIT DOSE: 200 MG
     Route: 048
     Dates: start: 20080909, end: 20081004
  3. NEXAVAR [Suspect]
     Dosage: UNIT DOSE: 200 MG
     Route: 048
     Dates: start: 20081110, end: 20090308
  4. NEXAVAR [Suspect]
     Dosage: UNIT DOSE: 200 MG
     Route: 048
     Dates: start: 20090309, end: 20090401
  5. NEXAVAR [Suspect]
     Route: 048
     Dates: start: 20090401, end: 20090429
  6. LAMISIL [Concomitant]
     Indication: TINEA INFECTION
     Dosage: ONCE OR TWICE PER DAY
     Route: 062
  7. OXYCONTIN [Concomitant]
     Indication: PAIN
     Route: 048
  8. LASIX [Concomitant]
     Indication: HYPERKALAEMIA
     Route: 065
     Dates: start: 20090429

REACTIONS (5)
  - BLOOD AMYLASE INCREASED [None]
  - DIVERTICULITIS [None]
  - GASTROINTESTINAL PERFORATION [None]
  - HYPOPHOSPHATAEMIA [None]
  - PALMAR-PLANTAR ERYTHRODYSAESTHESIA SYNDROME [None]
